FAERS Safety Report 5114945-0 (Version None)
Quarter: 2006Q3

REPORT INFORMATION
  Report Type: 
  Country: None (occurrence: None)
  Receive Date: 20060922
  Receipt Date: 20060914
  Transmission Date: 20061208
  Serious: Yes (Hospitalization)
  Sender: FDA-Public Use
  Company Number: 2006SP003291

PATIENT
  Age: 57 Year
  Sex: Male
  Weight: 102.0593 kg

DRUGS (4)
  1. LUNESTA [Suspect]
     Indication: INSOMNIA
     Dosage: 3 MG;HS;ORAL
     Route: 048
     Dates: start: 20060401
  2. VYTORIN [Concomitant]
  3. PLAVIX [Concomitant]
  4. PROPACET 100 [Concomitant]

REACTIONS (3)
  - BREAST MASS [None]
  - BREAST TENDERNESS [None]
  - CORONARY ARTERY OCCLUSION [None]
